FAERS Safety Report 9251827 (Version 1)
Quarter: 2013Q1

REPORT INFORMATION
  Report Type: Spontaneous
  Country: US (occurrence: None)
  Receive Date: 20130305
  Receipt Date: 20130305
  Transmission Date: 20140127
  Serious: Yes (Other)
  Sender: FDA-Public Use
  Company Number: 163-21880-12090765

PATIENT
  Age: 52 Year
  Sex: Male
  Weight: 98.88 kg

DRUGS (10)
  1. REVLIMID (LENALIDOMIDE) (CAPSULES) [Suspect]
     Indication: PLASMA CELL MYELOMA
     Dosage: 25MG, 21 IN 28 D, PO
     Route: 048
     Dates: start: 20120811
  2. ACYCLOVIR (ACICLOVIR) (ACICLOVIR) [Concomitant]
  3. BACTRIM (BACTRIM) [Concomitant]
  4. DEXAMETHASONE (DEXAMETHASONE) [Concomitant]
  5. HYDROCODONE/APAP (VICODIN) [Concomitant]
  6. LEVOTHROID (LEVOTHYROXINE SODIUM) [Concomitant]
  7. MECLIZINE (MECLOZINE) [Concomitant]
  8. PAROXETINE (PAROXETINE) [Concomitant]
  9. PREVACID (LANSOPRAZOLE) [Concomitant]
  10. VITAMIN D (ERGOCALCIFEROL) [Concomitant]

REACTIONS (1)
  - White blood cell count decreased [None]
